FAERS Safety Report 9380105 (Version 1)
Quarter: 2013Q3

REPORT INFORMATION
  Report Type: Spontaneous
  Country: CN (occurrence: CN)
  Receive Date: 20130702
  Receipt Date: 20130702
  Transmission Date: 20140515
  Serious: Yes (Other)
  Sender: FDA-Public Use
  Company Number: CN-ABBOTT-13X-035-1112254-00

PATIENT
  Sex: Male

DRUGS (4)
  1. TERAZOSIN [Suspect]
     Indication: PRODUCT USED FOR UNKNOWN INDICATION
     Route: 048
  2. TRANSMETIL [Suspect]
     Indication: HEPATITIS VIRAL
     Route: 041
     Dates: start: 20120620, end: 20120621
  3. TRANSMETIL [Suspect]
     Indication: BLOOD BILIRUBIN INCREASED
  4. FRUCTOSE [Concomitant]
     Indication: DIABETES MELLITUS
     Route: 041
     Dates: start: 20130616, end: 20130620

REACTIONS (2)
  - Anaphylactic reaction [Recovered/Resolved]
  - Hypersensitivity [Unknown]
